FAERS Safety Report 16744142 (Version 2)
Quarter: 2019Q3

REPORT INFORMATION
  Report Type: Spontaneous
  Country: US (occurrence: US)
  Receive Date: 20190827
  Receipt Date: 20190829
  Transmission Date: 20191005
  Serious: Yes (Other)
  Sender: FDA-Public Use
  Company Number: US-TEVA-2019-US-1097031

PATIENT
  Sex: Female

DRUGS (1)
  1. PANTOPRAZOLE SODIUM DELAYED RELEASE TABLETS (TORRENT) [Suspect]
     Active Substance: PANTOPRAZOLE SODIUM
     Indication: OESOPHAGITIS
     Dosage: DELAYED-RELEASE TABLETS
     Route: 065

REACTIONS (3)
  - Surgery [Unknown]
  - Diarrhoea [Unknown]
  - Visual impairment [Unknown]
